FAERS Safety Report 4847277-6 (Version None)
Quarter: 2005Q4

REPORT INFORMATION
  Report Type: 
  Country: None (occurrence: None)
  Receive Date: 20051205
  Receipt Date: 20051121
  Transmission Date: 20060501
  Serious: Yes (Other)
  Sender: FDA-Public Use
  Company Number: 219700

PATIENT
  Sex: Male

DRUGS (2)
  1. RAPTIVA [Suspect]
     Indication: PSORIASIS
     Dates: start: 20050110
  2. LIPITOR [Concomitant]

REACTIONS (3)
  - GASTROINTESTINAL CARCINOMA [None]
  - METASTASES TO LIVER [None]
  - POLYCYTHAEMIA VERA [None]
